FAERS Safety Report 16069455 (Version 2)
Quarter: 2019Q1

REPORT INFORMATION
  Report Type: Spontaneous
  Country: US (occurrence: US)
  Receive Date: 20190313
  Receipt Date: 20190322
  Transmission Date: 20190418
  Serious: No
  Sender: FDA-Public Use
  Company Number: US-SA-2019SA064855

PATIENT
  Age: 6 Year
  Sex: Female

DRUGS (1)
  1. LANTUS SOLOSTAR [Suspect]
     Active Substance: INSULIN GLARGINE
     Indication: TYPE 1 DIABETES MELLITUS
     Dosage: 3.6 U, QD
     Route: 065

REACTIONS (5)
  - Drug ineffective [Unknown]
  - Product use issue [Unknown]
  - Blood glucose increased [Unknown]
  - Intentional product use issue [Unknown]
  - Wrong technique in product usage process [Unknown]
